FAERS Safety Report 22588352 (Version 1)
Quarter: 2023Q2

REPORT INFORMATION
  Report Type: Spontaneous
  Country: DK (occurrence: DK)
  Receive Date: 20230612
  Receipt Date: 20230612
  Transmission Date: 20230722
  Serious: Yes (Other)
  Sender: FDA-Public Use
  Company Number: DK-BoehringerIngelheim-2023-BI-242418

PATIENT
  Age: 75 Year
  Sex: Female

DRUGS (3)
  1. ALTEPLASE [Suspect]
     Active Substance: ALTEPLASE
     Indication: Product used for unknown indication
     Route: 065
  2. WARFARIN [Concomitant]
     Active Substance: WARFARIN
     Indication: Atrial fibrillation
  3. DALTEPARIN [Concomitant]
     Active Substance: DALTEPARIN
     Indication: Atrial fibrillation

REACTIONS (2)
  - Drug ineffective [Unknown]
  - No adverse event [Unknown]
